FAERS Safety Report 8936477 (Version 1)
Quarter: 2012Q4

REPORT INFORMATION
  Report Type: Report from Study
  Country: FR (occurrence: FR)
  Receive Date: 20121130
  Receipt Date: 20121130
  Transmission Date: 20130627
  Serious: Yes (Hospitalization)
  Sender: FDA-Public Use
  Company Number: FR-ABBOTT-12P-056-1013665-00

PATIENT
  Age: 33 Year
  Sex: Female

DRUGS (2)
  1. KALETRA TABLETS 200/50 [Suspect]
     Indication: HIV INFECTION
     Route: 048
  2. KALETRA TABLETS 200/50 [Suspect]
     Indication: PROPHYLAXIS AGAINST HIV INFECTION

REACTIONS (2)
  - Metrorrhagia [Not Recovered/Not Resolved]
  - Placenta praevia haemorrhage [Not Recovered/Not Resolved]
